FAERS Safety Report 16486999 (Version 1)
Quarter: 2019Q3

REPORT INFORMATION
  Report Type: Spontaneous
  Country: US (occurrence: US)
  Receive Date: 20190625
  Receipt Date: 20190625
  Transmission Date: 20191004
  Serious: No
  Sender: FDA-Public Use
  Company Number: None

PATIENT
  Age: 65 Year
  Sex: Female
  Weight: 109.35 kg

DRUGS (18)
  1. TOPAMAX [Concomitant]
     Active Substance: TOPIRAMATE
  2. PROBIOTIC [Concomitant]
     Active Substance: PROBIOTICS NOS
  3. TURMIC [Concomitant]
  4. HYDROXYZINE [Concomitant]
     Active Substance: HYDROXYZINE HYDROCHLORIDE
  5. METHOCARBONAL [Concomitant]
  6. VITAMIN A,D,E [Concomitant]
  7. BABY ASPIRIN [Concomitant]
     Active Substance: ASPIRIN
  8. MAGNESIUM 400 [Concomitant]
  9. AMLODIPINE [Concomitant]
     Active Substance: AMLODIPINE BESYLATE
  10. LEVOTHYROXINE. [Concomitant]
     Active Substance: LEVOTHYROXINE
  11. MSM 1000 [Concomitant]
  12. AIMOVIG [Suspect]
     Active Substance: ERENUMAB-AOOE
     Dosage: ?          QUANTITY:1 INJECTION(S);OTHER FREQUENCY:MONTH;?
     Route: 030
     Dates: start: 20190420, end: 20190520
  13. CYCLOBENZAPRINE. [Concomitant]
     Active Substance: CYCLOBENZAPRINE
  14. DULOXETINE. [Concomitant]
     Active Substance: DULOXETINE
  15. LISINOPRIL. [Concomitant]
     Active Substance: LISINOPRIL
  16. PROPRANOL [Concomitant]
     Active Substance: PROPRANOLOL HYDROCHLORIDE
  17. STOOL SOFTNER [Concomitant]
  18. ERYTHROMYCIN OPHTH OINT [Concomitant]

REACTIONS (2)
  - Poor quality sleep [None]
  - Muscle spasms [None]

NARRATIVE: CASE EVENT DATE: 20190603
